FAERS Safety Report 19365152 (Version 1)
Quarter: 2021Q2

REPORT INFORMATION
  Report Type: Spontaneous
  Country: US (occurrence: US)
  Receive Date: 20210603
  Receipt Date: 20210603
  Transmission Date: 20210717
  Serious: Yes (Hospitalization)
  Sender: FDA-Public Use
  Company Number: None

PATIENT
  Age: 58 Year
  Sex: Male

DRUGS (2)
  1. PROGRAF [Suspect]
     Active Substance: TACROLIMUS
     Indication: RENAL TRANSPLANT
     Dosage: ?          OTHER DOSE:MG;?
     Route: 048
     Dates: start: 20210322
  2. FLUCONAZOLE (FLUCONAZOLE 200MG TAB) [Suspect]
     Active Substance: FLUCONAZOLE
     Route: 048
     Dates: start: 20201210, end: 20210505

REACTIONS (9)
  - Nausea [None]
  - Toxicity to various agents [None]
  - Dizziness [None]
  - Peripheral swelling [None]
  - Tremor [None]
  - Chronic kidney disease [None]
  - Hyperglycaemia [None]
  - Acute kidney injury [None]
  - Constipation [None]

NARRATIVE: CASE EVENT DATE: 20210522
